FAERS Safety Report 20646263 (Version 1)
Quarter: 2022Q1

REPORT INFORMATION
  Report Type: Spontaneous
  Country: US (occurrence: US)
  Receive Date: 20220329
  Receipt Date: 20220329
  Transmission Date: 20220424
  Serious: No
  Sender: FDA-Public Use
  Company Number: US-drreddys-SPO/USA/22/0147944

PATIENT
  Age: 60 Year
  Sex: Female
  Weight: 56.25 kg

DRUGS (2)
  1. NICOTINE [Suspect]
     Active Substance: NICOTINE
     Indication: Tobacco user
     Route: 062
  2. NICOTINE TRANSDERMAL SYSTEM STEP 2 [Suspect]
     Active Substance: NICOTINE
     Indication: Tobacco user
     Route: 062

REACTIONS (4)
  - Feeling abnormal [Unknown]
  - Withdrawal syndrome [Unknown]
  - Tremor [Unknown]
  - Incorrect dose administered [Unknown]
